FAERS Safety Report 20095808 (Version 1)
Quarter: 2021Q4

REPORT INFORMATION
  Report Type: Spontaneous
  Country: US (occurrence: None)
  Receive Date: 20211121
  Receipt Date: 20211121
  Transmission Date: 20220303
  Serious: Yes (Death, Life-Threatening)
  Sender: FDA-Public Use
  Company Number: None

PATIENT
  Age: 68 Year
  Sex: Female
  Weight: 76.7 kg

DRUGS (12)
  1. BARICITINIB [Suspect]
     Active Substance: BARICITINIB
     Indication: COVID-19
     Dosage: FREQUENCY : DAILY;?
     Route: 048
     Dates: start: 20211119, end: 20211120
  2. DEXAMETHASONE [Concomitant]
     Active Substance: DEXAMETHASONE
  3. ALENDRONATE [Concomitant]
     Active Substance: ALENDRONATE SODIUM
  4. atenonol [Concomitant]
  5. REMDESIVIR [Concomitant]
     Active Substance: REMDESIVIR
  6. CLONIDINE [Concomitant]
     Active Substance: CLONIDINE
  7. DULOXETINE [Concomitant]
     Active Substance: DULOXETINE
  8. LISINOPRIL [Concomitant]
     Active Substance: LISINOPRIL
  9. METFORMIN [Concomitant]
     Active Substance: METFORMIN HYDROCHLORIDE
  10. MONTELUKAST SODIUM [Concomitant]
     Active Substance: MONTELUKAST SODIUM
  11. POTASSIUM [Concomitant]
     Active Substance: POTASSIUM
  12. PREDNISONE [Concomitant]
     Active Substance: PREDNISONE

REACTIONS (2)
  - Renal infarct [None]
  - Splenic infarction [None]

NARRATIVE: CASE EVENT DATE: 20211120
